FAERS Safety Report 22035349 (Version 1)
Quarter: 2023Q1

REPORT INFORMATION
  Report Type: Spontaneous
  Country: US (occurrence: None)
  Receive Date: 20230223
  Receipt Date: 20230223
  Transmission Date: 20230417
  Serious: Yes (Other)
  Sender: FDA-Public Use
  Company Number: None

PATIENT
  Age: 86 Year
  Sex: Male

DRUGS (9)
  1. BIKTARVY [Suspect]
     Active Substance: BICTEGRAVIR SODIUM\EMTRICITABINE\TENOFOVIR ALAFENAMIDE FUMARATE
     Indication: HIV infection
     Dosage: FREQUENCY : DAILY;?
     Route: 048
     Dates: start: 20221216, end: 20230223
  2. AMIODARONE [Concomitant]
     Active Substance: AMIODARONE
     Dates: start: 20230125
  3. ASPIRIN [Concomitant]
     Active Substance: ASPIRIN
     Dates: start: 20230125
  4. ATORVASTATIN [Concomitant]
     Active Substance: ATORVASTATIN
     Dates: start: 20210504
  5. ELIQUIS [Concomitant]
     Active Substance: APIXABAN
     Dates: start: 20210521
  6. Entresto 24-26 [Concomitant]
     Dates: start: 20210622
  7. LATANOPROST [Concomitant]
     Active Substance: LATANOPROST
     Dates: start: 20210506
  8. Levothyroxine 0.150mcg [Concomitant]
     Dates: start: 20210825
  9. MIDODRINE [Concomitant]
     Active Substance: MIDODRINE
     Dates: start: 20210414

REACTIONS (2)
  - Fall [None]
  - Muscular weakness [None]

NARRATIVE: CASE EVENT DATE: 20230202
